FAERS Safety Report 7463974-0 (Version None)
Quarter: 2011Q2

REPORT INFORMATION
  Report Type: 
  Country: None (occurrence: None)
  Receive Date: 20110506
  Receipt Date: 20110503
  Transmission Date: 20111010
  Serious: Yes (Hospitalization)
  Sender: FDA-Public Use
  Company Number: US-ABBOTT-11P-163-0714124-00

PATIENT
  Sex: Male
  Weight: 104.42 kg

DRUGS (6)
  1. DEPAKOTE ER [Suspect]
  2. LAMITL [Concomitant]
     Indication: PRODUCT USED FOR UNKNOWN INDICATION
  3. RISPERDAL CONSTA [Suspect]
     Indication: PRODUCT USED FOR UNKNOWN INDICATION
     Dosage: 25G, QOW
  4. DEPAKOTE [Suspect]
     Indication: SCHIZOPHRENIA
  5. LACTULOSE [Suspect]
     Indication: PRODUCT USED FOR UNKNOWN INDICATION
  6. DEPAKOTE ER [Suspect]
     Indication: SCHIZOPHRENIA

REACTIONS (3)
  - PSYCHOTIC DISORDER [None]
  - HYPERAMMONAEMIA [None]
  - DIARRHOEA [None]
